FAERS Safety Report 24776798 (Version 1)
Quarter: 2024Q4

REPORT INFORMATION
  Report Type: Report from Study
  Country: US (occurrence: US)
  Receive Date: 20241226
  Receipt Date: 20241226
  Transmission Date: 20250115
  Serious: Yes (Hospitalization)
  Sender: ROCHE
  Company Number: US-ROCHE-10000151020

PATIENT
  Age: 24 Year
  Sex: Female
  Weight: 67.13 kg

DRUGS (6)
  1. OCREVUS [Suspect]
     Active Substance: OCRELIZUMAB
     Indication: Relapsing-remitting multiple sclerosis
     Route: 042
     Dates: start: 202307, end: 2023
  2. OCREVUS [Suspect]
     Active Substance: OCRELIZUMAB
     Dosage: ONLY RECEIVED 120 MG OF THIS DOSE.
     Route: 042
     Dates: start: 20241105
  3. SOLU-MEDROL [Concomitant]
     Active Substance: METHYLPREDNISOLONE SODIUM SUCCINATE
     Route: 042
     Dates: start: 20241105, end: 20241105
  4. VENLAFAXINE [Concomitant]
     Active Substance: VENLAFAXINE HYDROCHLORIDE
     Indication: Migraine
     Dosage: STOPPED FOR THE PREGNANCY.
  5. ZYRTEC [Concomitant]
     Active Substance: CETIRIZINE HYDROCHLORIDE
  6. PEPCID [Concomitant]
     Active Substance: FAMOTIDINE

REACTIONS (7)
  - Maternal exposure before pregnancy [Unknown]
  - Throat irritation [Recovered/Resolved]
  - Oropharyngeal pain [Recovering/Resolving]
  - Pyrexia [Recovered/Resolved]
  - Intercepted product storage error [Unknown]
  - Oligohydramnios [Unknown]
  - Back pain [Recovered/Resolved]

NARRATIVE: CASE EVENT DATE: 20230701
